FAERS Safety Report 17721292 (Version 2)
Quarter: 2020Q3

REPORT INFORMATION
  Report Type: Report from Study
  Country: None (occurrence: AU)
  Receive Date: 20200429
  Receipt Date: 20200710
  Transmission Date: 20201102
  Serious: Yes (Other)
  Sender: FDA-Public Use
  Company Number: AU-US WORLDMEDS, LLC-USW202004-000828

PATIENT
  Age: 60 Year
  Sex: Male

DRUGS (1)
  1. APOMORPHINE HYDROCHLORIDE [Suspect]
     Active Substance: APOMORPHINE HYDROCHLORIDE
     Indication: PARKINSON^S DISEASE
     Route: 058
     Dates: start: 20190306

REACTIONS (6)
  - Abdominal infection [Unknown]
  - Injection site swelling [Recovered/Resolved]
  - Injection site necrosis [Unknown]
  - Injection site pain [Recovered/Resolved]
  - Skin infection [Recovered/Resolved]
  - Injection site erythema [Recovered/Resolved]

NARRATIVE: CASE EVENT DATE: 20200415
